FAERS Safety Report 7486531-9 (Version None)
Quarter: 2011Q2

REPORT INFORMATION
  Report Type: 
  Country: None (occurrence: None)
  Receive Date: 20110517
  Receipt Date: 20110505
  Transmission Date: 20111010
  Serious: Yes (Other)
  Sender: FDA-Public Use
  Company Number: US-UCBSA-032340

PATIENT
  Sex: Male

DRUGS (3)
  1. LEFLUNOMIDE [Concomitant]
     Indication: ARTHRITIS
     Dosage: 10 MG EVERY OTHER DAY I TAKE 2 TABLETS
     Route: 048
  2. CIMZIA [Suspect]
     Indication: RHEUMATOID ARTHRITIS
     Route: 058
     Dates: start: 20110218, end: 20110401
  3. PREDNISONE [Concomitant]
     Route: 048
     Dates: start: 20100101, end: 20110401

REACTIONS (2)
  - RASH [None]
  - RASH GENERALISED [None]
